FAERS Safety Report 8190482-4 (Version None)
Quarter: 2012Q1

REPORT INFORMATION
  Report Type: 
  Country: None (occurrence: None)
  Receive Date: 20120307
  Receipt Date: 20120228
  Transmission Date: 20120608
  Serious: Yes (Other)
  Sender: FDA-Public Use
  Company Number: PHHY2012IT017417

PATIENT
  Age: 42 Year
  Sex: Male

DRUGS (7)
  1. VINCRISTINE [Suspect]
     Indication: NON-HODGKIN'S LYMPHOMA
  2. METHOTREXATE [Suspect]
     Indication: NON-HODGKIN'S LYMPHOMA
  3. LEUCOVORIN CALCIUM [Suspect]
     Indication: NON-HODGKIN'S LYMPHOMA
  4. DOXORUBICIN HCL [Suspect]
     Indication: NON-HODGKIN'S LYMPHOMA
  5. CYCLOPHOSPHAMIDE [Suspect]
     Indication: NON-HODGKIN'S LYMPHOMA
  6. BLEOMYCIN SULFATE [Suspect]
     Indication: NON-HODGKIN'S LYMPHOMA
  7. PREDNISONE TAB [Suspect]
     Indication: NON-HODGKIN'S LYMPHOMA

REACTIONS (5)
  - LEUKOPENIA [None]
  - ANAEMIA [None]
  - MYELODYSPLASTIC SYNDROME [None]
  - DYSPLASIA [None]
  - THROMBOCYTOPENIA [None]
